FAERS Safety Report 10264125 (Version 1)
Quarter: 2014Q2

REPORT INFORMATION
  Report Type: Spontaneous
  Country: CN (occurrence: CN)
  Receive Date: 20140627
  Receipt Date: 20140627
  Transmission Date: 20141212
  Serious: Yes (Other)
  Sender: FDA-Public Use
  Company Number: CN-MERCK-1406CHN010684

PATIENT
  Age: 97 Year
  Sex: Male

DRUGS (1)
  1. PROSCAR [Suspect]
     Indication: BENIGN PROSTATIC HYPERPLASIA
     Dosage: 5 MG, DAILY
     Route: 048
     Dates: start: 201301

REACTIONS (3)
  - Catheter placement [Not Recovered/Not Resolved]
  - Pneumonia [Recovering/Resolving]
  - Urinary retention [Recovering/Resolving]
